FAERS Safety Report 5475490-6 (Version None)
Quarter: 2007Q3

REPORT INFORMATION
  Report Type: 
  Country: None (occurrence: None)
  Receive Date: 20070914
  Receipt Date: 20070521
  Transmission Date: 20080115
  Serious: Yes (Other)
  Sender: FDA-Public Use
  Company Number: 07-108

PATIENT
  Age: 75 Year
  Sex: Male
  Weight: 90.7194 kg

DRUGS (4)
  1. ALEVE [Suspect]
     Indication: PAIN IN EXTREMITY
     Dosage: 440 MG, DAILY, ORAL
     Route: 048
     Dates: start: 20070511, end: 20070513
  2. LISINOPRIL [Concomitant]
  3. ATENOLOL [Concomitant]
  4. LISINOPRIL AND HYDROCHLOROTHIAZIDE [Concomitant]

REACTIONS (1)
  - HAEMATURIA [None]
